FAERS Safety Report 17798724 (Version 1)
Quarter: 2020Q2

REPORT INFORMATION
  Report Type: Spontaneous
  Country: CN (occurrence: CN)
  Receive Date: 20200518
  Receipt Date: 20200518
  Transmission Date: 20200714
  Serious: Yes (Disabling, Other)
  Sender: FDA-Public Use
  Company Number: CN-PFIZER INC-2020194475

PATIENT
  Age: 29 Year
  Sex: Female
  Weight: 50 kg

DRUGS (1)
  1. MEDROL [Suspect]
     Active Substance: METHYLPREDNISOLONE
     Indication: IMMUNOMODULATORY THERAPY
     Dosage: 16.000 MG, 1X/DAY
     Route: 048
     Dates: start: 20190524, end: 20200514

REACTIONS (3)
  - Cataract [Recovering/Resolving]
  - Glaucoma [Recovering/Resolving]
  - Retinal vein occlusion [Recovering/Resolving]

NARRATIVE: CASE EVENT DATE: 20200416
